FAERS Safety Report 6523975-3 (Version None)
Quarter: 2009Q4

REPORT INFORMATION
  Report Type: 
  Country: None (occurrence: None)
  Receive Date: 20091231
  Receipt Date: 20091222
  Transmission Date: 20100525
  Serious: Yes (Hospitalization)
  Sender: FDA-Public Use
  Company Number: CA-ABBOTT-09P-028-0616343-00

PATIENT
  Sex: Male
  Weight: 113.5 kg

DRUGS (6)
  1. LUPRON DEPOT [Suspect]
     Indication: PROSTATE CANCER
     Route: 050
     Dates: start: 20080107, end: 20090909
  2. AVALID [Concomitant]
     Indication: HYPERTENSION
     Dosage: 300/25MG DAILY
     Dates: start: 20070601
  3. AVALID [Concomitant]
     Indication: FLUID RETENTION
  4. NORVASC [Concomitant]
     Indication: DRUG USE FOR UNKNOWN INDICATION
     Dosage: 5MG DAILY
     Dates: start: 20070601
  5. ASAPHEN [Concomitant]
     Indication: DRUG USE FOR UNKNOWN INDICATION
     Dosage: 80MG DAILY
     Dates: start: 20090601
  6. BICALUTAMIDE [Concomitant]
     Indication: DRUG USE FOR UNKNOWN INDICATION
     Dosage: 50MG DAILY
     Route: 048

REACTIONS (3)
  - OEDEMA PERIPHERAL [None]
  - PAIN [None]
  - SECRETION DISCHARGE [None]
